FAERS Safety Report 6220364-6 (Version None)
Quarter: 2009Q2

REPORT INFORMATION
  Report Type: 
  Country: None (occurrence: None)
  Receive Date: 20090610
  Receipt Date: 20090529
  Transmission Date: 20091009
  Serious: Yes (Hospitalization)
  Sender: FDA-Public Use
  Company Number: ES-PFIZER INC-2009220130

PATIENT
  Age: 78 Year

DRUGS (4)
  1. ALDACTONE [Suspect]
     Indication: HEPATIC CIRRHOSIS
     Dosage: 25 MG, 4X/DAY
     Route: 048
     Dates: start: 20080702, end: 20080722
  2. ENALAPRIL [Interacting]
     Indication: BLOOD PRESSURE INCREASED
     Dosage: 20 MG, 1X/DAY
     Route: 048
  3. ATENOLOL [Concomitant]
     Indication: BLOOD PRESSURE INCREASED
     Dosage: UNK
     Route: 048
  4. OMEPRAZOL [Concomitant]
     Indication: PROPHYLAXIS
     Dosage: UNK
     Route: 048

REACTIONS (2)
  - DRUG INTERACTION [None]
  - RENAL FAILURE ACUTE [None]
